FAERS Safety Report 7939343-3 (Version None)
Quarter: 2011Q4

REPORT INFORMATION
  Report Type: 
  Country: None (occurrence: None)
  Receive Date: 20111125
  Receipt Date: 20111117
  Transmission Date: 20120403
  Serious: Yes (Hospitalization)
  Sender: FDA-Public Use
  Company Number: DE-AMGEN-DEUSP2011060879

PATIENT
  Sex: Female

DRUGS (1)
  1. ARANESP [Suspect]
     Indication: PRODUCT USED FOR UNKNOWN INDICATION
     Dosage: UNK
     Dates: start: 20110901

REACTIONS (3)
  - RETICULOCYTE COUNT ABNORMAL [None]
  - THERAPEUTIC RESPONSE DECREASED [None]
  - HAEMOGLOBIN DECREASED [None]
